FAERS Safety Report 15314695 (Version 1)
Quarter: 2018Q3

REPORT INFORMATION
  Report Type: Spontaneous
  Country: AE (occurrence: AE)
  Receive Date: 20180815
  Receipt Date: 20180815
  Transmission Date: 20181010
  Serious: Yes (Other)
  Sender: FDA-Public Use
  Company Number: None

PATIENT
  Age: 26 Year
  Sex: Female

DRUGS (1)
  1. MODAFINIL. [Suspect]
     Active Substance: MODAFINIL
     Indication: PRODUCT USED FOR UNKNOWN INDICATION
     Dosage: 200 MG Q8HRS X 2 DOSES; ORAL?
     Route: 048
     Dates: start: 20180801, end: 20180801

REACTIONS (2)
  - Blood pressure increased [None]
  - Insomnia [None]

NARRATIVE: CASE EVENT DATE: 20180802
